FAERS Safety Report 14197824 (Version 2)
Quarter: 2018Q4

REPORT INFORMATION
  Report Type: Report from Study
  Country: CA (occurrence: CA)
  Receive Date: 20171117
  Receipt Date: 20181206
  Transmission Date: 20190204
  Serious: Yes (Hospitalization, Other)
  Sender: FDA-Public Use
  Company Number: CA-ROCHE-2023213

PATIENT
  Age: 46 Year
  Sex: Male

DRUGS (19)
  1. ACETAMINOPHEN. [Concomitant]
     Active Substance: ACETAMINOPHEN
     Indication: PREMEDICATION
     Route: 048
     Dates: start: 20171023
  2. ACETYLSALICYLIC ACID [Concomitant]
     Active Substance: ASPIRIN
  3. HUMALOG [Concomitant]
     Active Substance: INSULIN LISPRO
  4. DIPHENHYDRAMINE. [Concomitant]
     Active Substance: DIPHENHYDRAMINE
     Route: 048
     Dates: start: 20171023
  5. RITUXAN [Suspect]
     Active Substance: RITUXIMAB
     Dosage: INFUSION NO. 3
     Route: 042
     Dates: start: 20180528
  6. FUROSEMIDE. [Concomitant]
     Active Substance: FUROSEMIDE
  7. ALDACTONE [Concomitant]
     Active Substance: SPIRONOLACTONE
  8. ONE ALPHA [Concomitant]
     Active Substance: ALFACALCIDOL
  9. RITUXAN [Suspect]
     Active Substance: RITUXIMAB
     Indication: VASCULITIS
     Dosage: DAY 1, 15, (FIRST DOSE THROUGH RPAP)
     Route: 042
     Dates: start: 20171023
  10. ZYLOPRIM [Concomitant]
     Active Substance: ALLOPURINOL
  11. ADVAGRAF [Concomitant]
     Active Substance: TACROLIMUS
  12. SOLU-MEDROL [Concomitant]
     Active Substance: METHYLPREDNISOLONE SODIUM SUCCINATE
     Route: 048
     Dates: start: 20171023
  13. RITUXAN [Suspect]
     Active Substance: RITUXIMAB
     Indication: NEPHROTIC SYNDROME
     Route: 042
     Dates: start: 20100201
  14. BISOPROLOL [Concomitant]
     Active Substance: BISOPROLOL
  15. STATEX (CANADA) [Concomitant]
     Active Substance: MORPHINE SULFATE
  16. METHYLPREDNISOLONE. [Concomitant]
     Active Substance: METHYLPREDNISOLONE
     Route: 042
  17. RITUXAN [Suspect]
     Active Substance: RITUXIMAB
     Route: 042
     Dates: start: 20171122
  18. PANTOPRAZOLE [Concomitant]
     Active Substance: PANTOPRAZOLE
  19. CANDESARTAN. [Concomitant]
     Active Substance: CANDESARTAN

REACTIONS (8)
  - Oedema peripheral [Not Recovered/Not Resolved]
  - Blood creatinine increased [Not Recovered/Not Resolved]
  - Protein total increased [Not Recovered/Not Resolved]
  - Blood creatinine increased [Unknown]
  - Vasculitis [Not Recovered/Not Resolved]
  - Urine abnormality [Not Recovered/Not Resolved]
  - Proteinuria [Not Recovered/Not Resolved]
  - Acute kidney injury [Unknown]

NARRATIVE: CASE EVENT DATE: 20171023
